FAERS Safety Report 7581140-5 (Version None)
Quarter: 2011Q2

REPORT INFORMATION
  Report Type: 
  Country: None (occurrence: None)
  Receive Date: 20110629
  Receipt Date: 20110622
  Transmission Date: 20111010
  Serious: Yes (Other)
  Sender: FDA-Public Use
  Company Number: PL-PFIZER INC-2011138191

PATIENT
  Age: 26 Year
  Sex: Male

DRUGS (2)
  1. ZOLAFREN [Concomitant]
     Dosage: 5 MG, UNK
  2. ZIPRASIDONE HYDROCHLORIDE [Suspect]
     Indication: SLEEP DISORDER
     Dosage: 40 MG, UNK

REACTIONS (9)
  - IMMUNODEFICIENCY [None]
  - SKIN DISCOLOURATION [None]
  - INSOMNIA [None]
  - DEPERSONALISATION [None]
  - DRY MOUTH [None]
  - CONFUSIONAL STATE [None]
  - ABDOMINAL DISTENSION [None]
  - BRONCHITIS [None]
  - CONSTIPATION [None]
